FAERS Safety Report 17434126 (Version 38)
Quarter: 2021Q2

REPORT INFORMATION
  Report Type: Spontaneous
  Country: CA (occurrence: CA)
  Receive Date: 20200219
  Receipt Date: 20210625
  Transmission Date: 20210716
  Serious: Yes (Hospitalization, Other)
  Sender: FDA-Public Use
  Company Number: CA-CELLTRION INC.-2020CA019234

PATIENT

DRUGS (26)
  1. METRONIDAZOLE. [Concomitant]
     Active Substance: METRONIDAZOLE
     Dosage: 1 DF (FOR 14 DAYS  )
     Route: 065
     Dates: start: 20200428, end: 2020
  2. INFLECTRA [Suspect]
     Active Substance: INFLIXIMAB-DYYB
     Dosage: 900 MG,0, 2, 6, THEN EVERY 4 WEEKS
     Route: 042
     Dates: start: 20200910
  3. INFLECTRA [Suspect]
     Active Substance: INFLIXIMAB-DYYB
     Dosage: 900 MG, 0, 2, 6, THEN EVERY 4 WEEKS
     Route: 042
     Dates: start: 20200910
  4. INFLECTRA [Suspect]
     Active Substance: INFLIXIMAB-DYYB
     Dosage: 900 MG EVERY 4 WEEKS
     Route: 042
     Dates: start: 20210212
  5. HYDROMORPHONE [Concomitant]
     Active Substance: HYDROMORPHONE
     Dosage: 4 MG
     Dates: start: 20200220
  6. INFLECTRA [Suspect]
     Active Substance: INFLIXIMAB-DYYB
     Dosage: 900 MG, 0,2, 6, THEN EVERY 8 WEEKS
     Route: 042
     Dates: start: 20200512
  7. HYDROCORTISONE. [Concomitant]
     Active Substance: HYDROCORTISONE
     Indication: PREMEDICATION
     Dosage: 100 MG
     Dates: start: 20200910, end: 20200910
  8. PANTOLOC [PANTOPRAZOLE] [Concomitant]
     Active Substance: PANTOPRAZOLE SODIUM
     Dosage: UNK
  9. INFLECTRA [Suspect]
     Active Substance: INFLIXIMAB-DYYB
     Dosage: 500 MG, 0, 2, 6, THEN EVERY 8 WEEKS
     Route: 042
     Dates: start: 20191220
  10. INFLECTRA [Suspect]
     Active Substance: INFLIXIMAB-DYYB
     Dosage: 900 MG, 0,2, 6, THEN EVERY 8 WEEKS
     Route: 042
     Dates: start: 20200512
  11. INFLECTRA [Suspect]
     Active Substance: INFLIXIMAB-DYYB
     Dosage: 900 MG, 0, 2, 6, THEN EVERY 4 WEEKS
     Route: 042
     Dates: start: 20200512
  12. INFLECTRA [Suspect]
     Active Substance: INFLIXIMAB-DYYB
     Dosage: 900 MG,0, 2, 6, THEN EVERY 8 WEEKS
     Route: 042
     Dates: start: 20200526, end: 20200526
  13. INFLECTRA [Suspect]
     Active Substance: INFLIXIMAB-DYYB
     Dosage: 900 MG EVERY 4 WEEKS
     Route: 042
     Dates: start: 20210505
  14. INFLECTRA [Suspect]
     Active Substance: INFLIXIMAB-DYYB
     Dosage: 900 MG EVERY 4 WEEKS
     Route: 042
     Dates: start: 20210505
  15. INFLECTRA [Suspect]
     Active Substance: INFLIXIMAB-DYYB
     Dosage: 500 MG, 2, 6, THEN EVERY 8 WEEKS
     Route: 042
     Dates: start: 20200220
  16. INFLECTRA [Suspect]
     Active Substance: INFLIXIMAB-DYYB
     Dosage: 500 MG, EVERY 0 HOSPITAL START REINDUCTION
     Route: 042
     Dates: start: 20200225, end: 20200225
  17. INFLECTRA [Suspect]
     Active Substance: INFLIXIMAB-DYYB
     Dosage: 10 MG/KG,0,2 WEEKS (COMPLETE REGIMEN UNKNOWN)
     Route: 042
     Dates: start: 20201211
  18. LEVOFLOXACIN. [Concomitant]
     Active Substance: LEVOFLOXACIN
     Dosage: 1 DF (FOR 14 DAYS  )
     Route: 065
     Dates: start: 20200428, end: 2020
  19. PREDNISONE. [Concomitant]
     Active Substance: PREDNISONE
     Dosage: UNK
  20. INFLECTRA [Suspect]
     Active Substance: INFLIXIMAB-DYYB
     Dosage: 10 MG/KG
     Route: 042
     Dates: start: 20201226
  21. INFLECTRA [Suspect]
     Active Substance: INFLIXIMAB-DYYB
     Dosage: 900 MG EVERY 4 WEEKS
     Route: 042
     Dates: start: 20210421
  22. INFLECTRA [Suspect]
     Active Substance: INFLIXIMAB-DYYB
     Indication: CROHN^S DISEASE
     Dosage: 500 MG, WEEK 0
     Route: 042
     Dates: start: 20191220, end: 20191220
  23. HYDROMORPHONE [Concomitant]
     Active Substance: HYDROMORPHONE
     Indication: ANALGESIC THERAPY
     Dosage: 4 MG
     Route: 065
     Dates: start: 20200211, end: 202002
  24. INFLECTRA [Suspect]
     Active Substance: INFLIXIMAB-DYYB
     Dosage: 900 MG,0 2, 6, THEN EVERY 8 WEEKS
     Route: 042
     Dates: start: 20200623, end: 20200623
  25. INFLECTRA [Suspect]
     Active Substance: INFLIXIMAB-DYYB
     Dosage: 900 MG EVERY 4 WEEKS
     Route: 042
     Dates: start: 20210505
  26. INFLECTRA [Suspect]
     Active Substance: INFLIXIMAB-DYYB
     Dosage: 900 MG EVERY 4 WEEKS
     Route: 042
     Dates: start: 20210505

REACTIONS (75)
  - Abscess [Not Recovered/Not Resolved]
  - Osteomyelitis [Unknown]
  - Haemorrhage [Unknown]
  - Vaginal abscess [Unknown]
  - Post procedural complication [Not Recovered/Not Resolved]
  - Intentional product use issue [Unknown]
  - Stoma site discomfort [Not Recovered/Not Resolved]
  - Frequent bowel movements [Unknown]
  - Arthralgia [Unknown]
  - Anal abscess [Recovering/Resolving]
  - Pyoderma gangrenosum [Unknown]
  - Skin swelling [Not Recovered/Not Resolved]
  - Asthenia [Unknown]
  - Pyrexia [Not Recovered/Not Resolved]
  - Stoma site discharge [Not Recovered/Not Resolved]
  - Oxygen saturation decreased [Unknown]
  - Muscle spasms [Not Recovered/Not Resolved]
  - Infected fistula [Recovering/Resolving]
  - Urinary tract infection bacterial [Unknown]
  - Off label use [Unknown]
  - Inappropriate schedule of product administration [Unknown]
  - Pain [Not Recovered/Not Resolved]
  - Aphthous ulcer [Unknown]
  - Neck pain [Unknown]
  - Abdominal pain [Unknown]
  - Sleep disorder [Unknown]
  - Poor venous access [Recovered/Resolved]
  - Anxiety [Unknown]
  - Coccydynia [Unknown]
  - Wound infection [Unknown]
  - Skin ulcer [Not Recovered/Not Resolved]
  - Haematochezia [Unknown]
  - Weight decreased [Unknown]
  - Condition aggravated [Not Recovered/Not Resolved]
  - Leukocyturia [Unknown]
  - Dysuria [Unknown]
  - Anorectal discomfort [Unknown]
  - Vision blurred [Unknown]
  - Skin discolouration [Unknown]
  - Swelling [Not Recovered/Not Resolved]
  - Bacterial infection [Unknown]
  - Vulvovaginal pain [Unknown]
  - Malaise [Not Recovered/Not Resolved]
  - Acne [Unknown]
  - Infection [Unknown]
  - Abdominal distension [Unknown]
  - Flatulence [Unknown]
  - Stomatitis [Unknown]
  - Abdominal discomfort [Unknown]
  - Purulent discharge [Unknown]
  - Glossodynia [Unknown]
  - Abnormal faeces [Unknown]
  - Tenderness [Unknown]
  - Food intolerance [Unknown]
  - Crohn^s disease [Recovering/Resolving]
  - Anal fistula [Not Recovered/Not Resolved]
  - Stoma obstruction [Unknown]
  - Rectal haemorrhage [Unknown]
  - Nausea [Not Recovered/Not Resolved]
  - Vomiting [Unknown]
  - Anal fissure [Unknown]
  - Diarrhoea [Not Recovered/Not Resolved]
  - Mobility decreased [Unknown]
  - Illness [Not Recovered/Not Resolved]
  - Discomfort [Not Recovered/Not Resolved]
  - Fistula [Unknown]
  - Fatigue [Unknown]
  - Gait disturbance [Unknown]
  - Depression [Not Recovered/Not Resolved]
  - Mouth ulceration [Unknown]
  - Decreased appetite [Unknown]
  - Stoma site pain [Not Recovered/Not Resolved]
  - Eating disorder [Not Recovered/Not Resolved]
  - Myalgia [Unknown]
  - Poor peripheral circulation [Unknown]

NARRATIVE: CASE EVENT DATE: 20200522
